FAERS Safety Report 26059599 (Version 2)
Quarter: 2025Q4

REPORT INFORMATION
  Report Type: Spontaneous
  Country: GB (occurrence: GB)
  Receive Date: 20251118
  Receipt Date: 20251124
  Transmission Date: 20260117
  Serious: Yes (Other)
  Sender: MERCK SHARP & DOHME LLC
  Company Number: None

PATIENT
  Age: 55 Year
  Sex: Female
  Weight: 91 kg

DRUGS (4)
  1. SITAGLIPTIN [Suspect]
     Active Substance: SITAGLIPTIN
     Dosage: 25 MG EVERY DAY
     Route: 048
     Dates: start: 20251008, end: 202510
  2. ESOMEPRAZOLE [Concomitant]
     Active Substance: ESOMEPRAZOLE
     Indication: Ill-defined disorder
     Dosage: TAKE ONE DAILY
     Dates: start: 20250520
  3. METFORMIN [Concomitant]
     Active Substance: METFORMIN HYDROCHLORIDE
     Indication: Type 2 diabetes mellitus
     Dosage: TAKE TWO TABLETS IN THE MORNING WITH FOOD
     Route: 048
     Dates: start: 20250619
  4. ATORVASTATIN [Concomitant]
     Active Substance: ATORVASTATIN
     Indication: Ill-defined disorder
     Dosage: TAKE ONE DAILY IN THE EVENING
     Dates: start: 20250619

REACTIONS (4)
  - Joint swelling [Recovered/Resolved]
  - Diarrhoea [Recovered/Resolved]
  - Headache [Recovered/Resolved]
  - Vomiting [Recovered/Resolved]
